FAERS Safety Report 8885141 (Version 1)
Quarter: 2012Q4

REPORT INFORMATION
  Report Type: 
  Country: US (occurrence: US)
  Receive Date: 20121102
  Receipt Date: 20121102
  Transmission Date: 20130627
  Serious: No
  Sender: FDA-Public Use
  Company Number: US-PFIZER INC-2012272235

PATIENT
  Age: 65 Year
  Sex: Male
  Weight: 88.44 kg

DRUGS (1)
  1. ADVIL [Suspect]
     Indication: PAIN
     Dosage: on and off at 200mg, two times a day
     Route: 048

REACTIONS (2)
  - Hyperhidrosis [Not Recovered/Not Resolved]
  - Cold sweat [Not Recovered/Not Resolved]
